FAERS Safety Report 20191114 (Version 2)
Quarter: 2022Q1

REPORT INFORMATION
  Report Type: Report from Study
  Country: CA (occurrence: CA)
  Receive Date: 20211216
  Receipt Date: 20220218
  Transmission Date: 20220423
  Serious: Yes (Hospitalization)
  Sender: FDA-Public Use
  Company Number: CA-JNJFOC-20210906521

PATIENT
  Age: 64 Year
  Sex: Female

DRUGS (2)
  1. STELARA [Suspect]
     Active Substance: USTEKINUMAB
     Indication: Psoriasis
     Route: 058
     Dates: start: 20131220
  2. STELARA [Suspect]
     Active Substance: USTEKINUMAB

REACTIONS (13)
  - Heart valve operation [Unknown]
  - Post procedural complication [Unknown]
  - Kidney infection [Not Recovered/Not Resolved]
  - Acute pulmonary oedema [Not Recovered/Not Resolved]
  - Cystitis [Not Recovered/Not Resolved]
  - COVID-19 [Recovering/Resolving]
  - Pustular psoriasis [Unknown]
  - Genital infection fungal [Unknown]
  - Pain [Unknown]
  - Malaise [Unknown]
  - Abdominal pain upper [Unknown]
  - Vomiting [Unknown]
  - Fatigue [Unknown]

NARRATIVE: CASE EVENT DATE: 20210202
